FAERS Safety Report 9778907 (Version 2)
Quarter: 2014Q3

REPORT INFORMATION
  Report Type: Spontaneous
  Country: US (occurrence: US)
  Receive Date: 20131223
  Receipt Date: 20140709
  Transmission Date: 20150326
  Serious: Yes (Hospitalization, Other)
  Sender: FDA-Public Use
  Company Number: US-009507513-1312USA010474

PATIENT
  Sex: Female
  Weight: 103.5 kg

DRUGS (1)
  1. NUVARING [Suspect]
     Active Substance: ETHINYL ESTRADIOL\ETONOGESTREL
     Indication: CONTRACEPTION
     Dosage: UNK
     Route: 067
     Dates: end: 20130308

REACTIONS (7)
  - Pulmonary embolism [Unknown]
  - Cardiac murmur [Unknown]
  - Anxiety [Unknown]
  - Jaw operation [Unknown]
  - Gastrooesophageal reflux disease [Unknown]
  - Atrioventricular block second degree [Unknown]
  - Pneumonia [Not Recovered/Not Resolved]

NARRATIVE: CASE EVENT DATE: 20130308
